FAERS Safety Report 20838312 (Version 1)
Quarter: 2022Q2

REPORT INFORMATION
  Report Type: Report from Study
  Country: US (occurrence: US)
  Receive Date: 20220517
  Receipt Date: 20220517
  Transmission Date: 20220721
  Serious: Yes (Hospitalization)
  Sender: FDA-Public Use
  Company Number: US-BAYER-2022A067224

PATIENT
  Age: 40 Year
  Sex: Male

DRUGS (3)
  1. ADEMPAS [Suspect]
     Active Substance: RIOCIGUAT
     Indication: Pulmonary arterial hypertension
     Dosage: UNK
  2. ADEMPAS [Suspect]
     Active Substance: RIOCIGUAT
     Indication: Pulmonary arterial hypertension
     Dosage: 2.5 MG, TID
     Route: 048
     Dates: start: 20210526
  3. REMODULIN [Suspect]
     Active Substance: TREPROSTINIL

REACTIONS (6)
  - Hospitalisation [None]
  - Injection site pain [None]
  - Pain in jaw [None]
  - Nausea [None]
  - Headache [None]
  - Dizziness [None]
